FAERS Safety Report 25068757 (Version 1)
Quarter: 2025Q1

REPORT INFORMATION
  Report Type: Spontaneous
  Country: US (occurrence: None)
  Receive Date: 20250312
  Receipt Date: 20250312
  Transmission Date: 20250408
  Serious: Yes (Other)
  Sender: FDA-CTU
  Company Number: None

PATIENT

DRUGS (2)
  1. BAYER [Suspect]
     Active Substance: ASPIRIN
  2. FOOD PRODUCT, OTHER [Suspect]
     Active Substance: FOOD PRODUCT, OTHER

REACTIONS (1)
  - Toothache [None]
